FAERS Safety Report 18243683 (Version 2)
Quarter: 2020Q4

REPORT INFORMATION
  Report Type: Spontaneous
  Country: PL (occurrence: PL)
  Receive Date: 20200908
  Receipt Date: 20201009
  Transmission Date: 20210113
  Serious: Yes (Other)
  Sender: FDA-Public Use
  Company Number: PL-BAYER-2020-127664

PATIENT
  Age: 16 Year
  Sex: Female

DRUGS (1)
  1. VITRAKVI [Suspect]
     Active Substance: LAROTRECTINIB
     Indication: DESMOPLASTIC SMALL ROUND CELL TUMOUR
     Dosage: UNK
     Dates: start: 202003, end: 202007

REACTIONS (3)
  - Product use in unapproved indication [None]
  - Desmoplastic small round cell tumour [None]
  - Off label use [None]

NARRATIVE: CASE EVENT DATE: 202003
